FAERS Safety Report 7583868-X (Version None)
Quarter: 2011Q2

REPORT INFORMATION
  Report Type: 
  Country: None (occurrence: None)
  Receive Date: 20110628
  Receipt Date: 20110628
  Transmission Date: 20111010
  Serious: No
  Sender: FDA-Public Use
  Company Number: None

PATIENT
  Sex: Female
  Weight: 60.5 kg

DRUGS (2)
  1. LEVOTHYROXINE SODIUM [Suspect]
     Indication: HYPOTHYROIDISM
     Dosage: 175 MCG DAILY ORAL
     Route: 048
     Dates: start: 20110301, end: 20110501
  2. SYNTHROID [Suspect]

REACTIONS (5)
  - FATIGUE [None]
  - OEDEMA PERIPHERAL [None]
  - PRODUCT SUBSTITUTION ISSUE [None]
  - TEMPERATURE INTOLERANCE [None]
  - WEIGHT INCREASED [None]
